FAERS Safety Report 5583947-2 (Version None)
Quarter: 2008Q1

REPORT INFORMATION
  Report Type: 
  Country: None (occurrence: None)
  Receive Date: 20080103
  Receipt Date: 20080103
  Transmission Date: 20080703
  Serious: Yes (Hospitalization)
  Sender: FDA-Public Use
  Company Number: None

PATIENT
  Age: 85 Year
  Sex: Female

DRUGS (1)
  1. ASPIRIN [Suspect]
     Indication: DRUG THERAPY

REACTIONS (4)
  - DIARRHOEA HAEMORRHAGIC [None]
  - DUODENAL ULCER [None]
  - GASTRIC ULCER [None]
  - HAEMOGLOBIN DECREASED [None]
